FAERS Safety Report 13633869 (Version 1)
Quarter: 2017Q2

REPORT INFORMATION
  Report Type: Spontaneous
  Country: US (occurrence: US)
  Receive Date: 20170531
  Receipt Date: 20170531
  Transmission Date: 20170830
  Serious: No
  Sender: FDA-Public Use
  Company Number: US-ASTELLAS-1585510

PATIENT
  Sex: Female

DRUGS (6)
  1. CLARITIN [Concomitant]
     Active Substance: LORATADINE
  2. CARVEDILOL. [Concomitant]
     Active Substance: CARVEDILOL
     Route: 065
  3. CLOPIDOGREL BISULFATE. [Concomitant]
     Active Substance: CLOPIDOGREL BISULFATE
  4. GABAPENTIN. [Concomitant]
     Active Substance: GABAPENTIN
  5. FUROSEMIDE. [Concomitant]
     Active Substance: FUROSEMIDE
  6. TARCEVA [Suspect]
     Active Substance: ERLOTINIB HYDROCHLORIDE
     Indication: LUNG NEOPLASM MALIGNANT
     Route: 048
     Dates: start: 20140320

REACTIONS (1)
  - Disease progression [Unknown]
